FAERS Safety Report 24060768 (Version 1)
Quarter: 2024Q3

REPORT INFORMATION
  Report Type: Spontaneous
  Country: US (occurrence: US)
  Receive Date: 20240708
  Receipt Date: 20240708
  Transmission Date: 20241016
  Serious: Yes (Hospitalization, Other)
  Sender: SPRINGWORKS THERAPEUTIC
  Company Number: US-SPRINGWORKS THERAPEUTICS-SW-001775

PATIENT

DRUGS (1)
  1. OGSIVEO [Suspect]
     Active Substance: NIROGACESTAT\NIROGACESTAT HYDROBROMIDE
     Indication: Desmoid tumour

REACTIONS (3)
  - Gastric ulcer [Unknown]
  - Alanine aminotransferase increased [Unknown]
  - Aspartate aminotransferase increased [Unknown]
